FAERS Safety Report 20495781 (Version 1)
Quarter: 2022Q1

REPORT INFORMATION
  Report Type: Spontaneous
  Country: US (occurrence: US)
  Receive Date: 20220221
  Receipt Date: 20220221
  Transmission Date: 20220423
  Serious: Yes (Hospitalization)
  Sender: FDA-Public Use
  Company Number: US-BAYER-2022A022992

PATIENT
  Age: 86 Year
  Sex: Female

DRUGS (1)
  1. BAYER LOW DOSE [Suspect]
     Active Substance: ASPIRIN
     Dosage: 1 DF, QD(DAILY FOR 15 YEARS)
     Route: 048
     Dates: start: 20060101, end: 20210905

REACTIONS (6)
  - Epistaxis [Recovered/Resolved]
  - Epistaxis [Recovered/Resolved]
  - Epistaxis [Recovered/Resolved]
  - Hypomania [Recovered/Resolved]
  - Incorrect product administration duration [None]
  - Incorrect dose administered [None]

NARRATIVE: CASE EVENT DATE: 20210804
